FAERS Safety Report 4819686-2 (Version None)
Quarter: 2005Q4

REPORT INFORMATION
  Report Type: 
  Country: None (occurrence: None)
  Receive Date: 20051102
  Receipt Date: 20051102
  Transmission Date: 20060501
  Serious: Yes (Hospitalization)
  Sender: FDA-Public Use
  Company Number: None

PATIENT
  Age: 78 Year
  Sex: Male
  Weight: 108 kg

DRUGS (1)
  1. TETRACAINE SPINAL ANESTHESIA [Suspect]
     Indication: SPINAL ANAESTHESIA
     Dosage: 4 MG ONCE

REACTIONS (3)
  - ANAESTHETIC COMPLICATION VASCULAR [None]
  - BRADYCARDIA [None]
  - PROCEDURAL COMPLICATION [None]
